FAERS Safety Report 16024389 (Version 1)
Quarter: 2019Q1

REPORT INFORMATION
  Report Type: Spontaneous
  Country: US (occurrence: US)
  Receive Date: 20190301
  Receipt Date: 20190301
  Transmission Date: 20190418
  Serious: Yes (Other)
  Sender: FDA-Public Use
  Company Number: US-BAYER-2019-040139

PATIENT
  Age: 67 Year
  Sex: Female

DRUGS (4)
  1. DULCOLAX (BISACODYL) [Suspect]
     Active Substance: BISACODYL
     Indication: COLONOSCOPY
     Dosage: 4 - 7 TABLETS, ONCE
     Route: 048
  2. MIRALAX [Suspect]
     Active Substance: POLYETHYLENE GLYCOL 3350
     Indication: COLONOSCOPY
     Dosage: 32OZ IN THE NIGHT PLUS 32OZ IN THE MORNING
     Route: 048
     Dates: start: 201802, end: 201802
  3. MIRALAX [Suspect]
     Active Substance: POLYETHYLENE GLYCOL 3350
     Indication: CONSTIPATION
     Dosage: DAILY
     Dates: start: 2015, end: 201807
  4. MIRALAX [Suspect]
     Active Substance: POLYETHYLENE GLYCOL 3350
     Indication: CONSTIPATION
     Dosage: 32OZ IN THE NIGHT PLUS 32OZ IN THE MORNING
     Route: 048
     Dates: start: 201809, end: 201809

REACTIONS (6)
  - Product use in unapproved indication [Unknown]
  - Muscle spasms [Unknown]
  - Frequent bowel movements [Recovered/Resolved]
  - Traumatic fracture [Recovered/Resolved]
  - Syncope [Recovered/Resolved]
  - Off label use [Unknown]

NARRATIVE: CASE EVENT DATE: 201802
